FAERS Safety Report 5548856-3 (Version None)
Quarter: 2007Q4

REPORT INFORMATION
  Report Type: 
  Country: None (occurrence: None)
  Receive Date: 20071211
  Receipt Date: 20070323
  Transmission Date: 20080405
  Serious: No
  Sender: FDA-Public Use
  Company Number: US-AMGEN-KDL216468

PATIENT
  Sex: Female

DRUGS (1)
  1. ENBREL [Suspect]
     Indication: RHEUMATOID ARTHRITIS
     Route: 058
     Dates: start: 19990901

REACTIONS (5)
  - HYPERSENSITIVITY [None]
  - INJECTION SITE PAIN [None]
  - OEDEMA PERIPHERAL [None]
  - PIGMENTATION DISORDER [None]
  - RASH GENERALISED [None]
